FAERS Safety Report 7637707-9 (Version None)
Quarter: 2011Q3

REPORT INFORMATION
  Report Type: 
  Country: None (occurrence: None)
  Receive Date: 20110726
  Receipt Date: 20090402
  Transmission Date: 20111222
  Serious: Yes (Death)
  Sender: FDA-Public Use
  Company Number: PHFR2008GB01251

PATIENT
  Sex: Male

DRUGS (1)
  1. CLOZAPINE [Suspect]
     Indication: PARKINSON'S DISEASE
     Route: 048
     Dates: start: 20071207

REACTIONS (2)
  - BRONCHOPNEUMONIA [None]
  - PARKINSON'S DISEASE [None]
